FAERS Safety Report 9669097 (Version 2)
Quarter: 2013Q4

REPORT INFORMATION
  Report Type: Spontaneous
  Country: DE (occurrence: DE)
  Receive Date: 20131105
  Receipt Date: 20131118
  Transmission Date: 20140711
  Serious: Yes (Hospitalization, Other)
  Sender: FDA-Public Use
  Company Number: DE-ASTELLAS-2013EU009627

PATIENT
  Age: 50 Year
  Sex: Male

DRUGS (8)
  1. TACROLIMUS OINTMENT [Suspect]
     Indication: PYODERMA GANGRENOSUM
     Dosage: UNK
     Route: 061
  2. TACROLIMUS OINTMENT [Suspect]
     Indication: INFLAMMATION OF WOUND
  3. METHYLPREDNISOLONE [Suspect]
     Indication: PYODERMA GANGRENOSUM
     Dosage: 40 MG, UNKNOWN/D
     Route: 065
  4. METHYLPREDNISOLONE [Suspect]
     Indication: INFLAMMATION OF WOUND
  5. MYCOPHENOLATE MOFETIL [Suspect]
     Indication: PYODERMA GANGRENOSUM
     Dosage: 760 MG, BID
     Route: 065
  6. MYCOPHENOLATE MOFETIL [Suspect]
     Indication: INFLAMMATION OF WOUND
  7. PANTOPRAZOLE [Suspect]
     Indication: PYODERMA GANGRENOSUM
     Dosage: 20 MG, UNKNOWN/D
     Route: 065
  8. PANTOPRAZOLE [Suspect]
     Indication: INFLAMMATION OF WOUND

REACTIONS (3)
  - Off label use [Unknown]
  - Renal failure acute [Recovered/Resolved]
  - Immunosuppressant drug level increased [Recovered/Resolved]
